FAERS Safety Report 17861115 (Version 3)
Quarter: 2020Q4

REPORT INFORMATION
  Report Type: Spontaneous
  Country: JP (occurrence: JP)
  Receive Date: 20200604
  Receipt Date: 20201118
  Transmission Date: 20210113
  Serious: Yes (Hospitalization)
  Sender: FDA-Public Use
  Company Number: JP-ELI_LILLY_AND_COMPANY-JP202004011348

PATIENT
  Age: 71 Year
  Sex: Male
  Weight: 63 kg

DRUGS (6)
  1. GEMCITABINE HYDROCHLORIDE. [Suspect]
     Active Substance: GEMCITABINE HYDROCHLORIDE
     Dosage: 1200 MG, CYCLICAL
     Route: 042
     Dates: end: 20200513
  2. CISPLATIN. [Suspect]
     Active Substance: CISPLATIN
     Indication: SQUAMOUS CELL CARCINOMA OF LUNG
     Dosage: 100 MG, CYCLICAL
     Route: 042
     Dates: start: 20200414
  3. NECITUMUMAB [Suspect]
     Active Substance: NECITUMUMAB
     Indication: SQUAMOUS CELL CARCINOMA OF LUNG
     Dosage: 800 MG, CYCLICAL
     Route: 042
     Dates: start: 20200414
  4. GEMCITABINE HYDROCHLORIDE. [Suspect]
     Active Substance: GEMCITABINE HYDROCHLORIDE
     Indication: SQUAMOUS CELL CARCINOMA OF LUNG
     Dosage: 1200 MG, CYCLICAL
     Route: 042
     Dates: start: 20200414
  5. NECITUMUMAB [Suspect]
     Active Substance: NECITUMUMAB
     Dosage: 800 MG, CYCLICAL
     Route: 042
     Dates: end: 20200513
  6. CISPLATIN. [Suspect]
     Active Substance: CISPLATIN
     Dosage: 100 MG, CYCLICAL
     Route: 042
     Dates: end: 20200513

REACTIONS (4)
  - Diarrhoea [Unknown]
  - Rash [Recovering/Resolving]
  - Myelosuppression [Unknown]
  - Hypomagnesaemia [Recovered/Resolved]

NARRATIVE: CASE EVENT DATE: 202005
